FAERS Safety Report 7524404-3 (Version None)
Quarter: 2011Q2

REPORT INFORMATION
  Report Type: 
  Country: None (occurrence: None)
  Receive Date: 20110606
  Receipt Date: 20110523
  Transmission Date: 20111010
  Serious: Yes (Other)
  Sender: FDA-Public Use
  Company Number: PHHY2010BR85480

PATIENT
  Sex: Male

DRUGS (1)
  1. EXFORGE HCT [Suspect]
     Dosage: 160 MG OF VALS, 12.5 MG OF HYDR AND 5 MG OF AMLO

REACTIONS (1)
  - NEOPLASM MALIGNANT [None]
